FAERS Safety Report 7124606-4 (Version None)
Quarter: 2010Q4

REPORT INFORMATION
  Report Type: 
  Country: None (occurrence: None)
  Receive Date: 20101129
  Receipt Date: 20101115
  Transmission Date: 20110411
  Serious: Yes (Hospitalization, Other)
  Sender: FDA-Public Use
  Company Number: US-CELGENEUS-163-21880-10102532

PATIENT
  Sex: Female

DRUGS (11)
  1. REVLIMID [Suspect]
     Indication: MULTIPLE MYELOMA
     Route: 048
     Dates: start: 20081219, end: 20090101
  2. REVLIMID [Suspect]
     Route: 048
     Dates: start: 20100201
  3. DEXAMETHASONE [Suspect]
     Indication: MULTIPLE MYELOMA
  4. VELCADE [Suspect]
     Indication: MULTIPLE MYELOMA
  5. CALCIUM [Concomitant]
     Route: 048
  6. SYNTHROID [Concomitant]
     Route: 048
  7. FAMVIR [Concomitant]
     Route: 048
  8. DIFLUCAN [Concomitant]
     Route: 048
  9. FLUIDS [Concomitant]
     Route: 051
     Dates: start: 20101026
  10. ZOMETA [Concomitant]
     Route: 065
  11. IMODIUM [Concomitant]
     Route: 065

REACTIONS (2)
  - DEHYDRATION [None]
  - HERPES VIRUS INFECTION [None]
